FAERS Safety Report 25998669 (Version 1)
Quarter: 2025Q4

REPORT INFORMATION
  Report Type: Spontaneous
  Country: US (occurrence: US)
  Receive Date: 20251105
  Receipt Date: 20251105
  Transmission Date: 20260118
  Serious: No
  Sender: AJANTA PHARMA USA INC
  Company Number: US-AJANTA-2025AJA00144

PATIENT
  Age: 43 Year
  Weight: 175 kg

DRUGS (4)
  1. DULOXETINE [Suspect]
     Active Substance: DULOXETINE
     Indication: Affective disorder
     Dates: start: 20250828
  2. QUETIAPINE [Concomitant]
     Active Substance: QUETIAPINE
  3. PROPRANOLOL [Concomitant]
     Active Substance: PROPRANOLOL HYDROCHLORIDE
  4. CLONAZEPAM [Concomitant]
     Active Substance: CLONAZEPAM

REACTIONS (4)
  - Feeling abnormal [Unknown]
  - Drug ineffective [Unknown]
  - Product physical issue [Unknown]
  - Product substitution issue [Unknown]

NARRATIVE: CASE EVENT DATE: 20251016
